FAERS Safety Report 20780498 (Version 2)
Quarter: 2022Q2

REPORT INFORMATION
  Report Type: Other
  Country: US (occurrence: None)
  Receive Date: 20220504
  Receipt Date: 20220509
  Transmission Date: 20220721
  Serious: Yes (Other)
  Sender: FDA-Public Use
  Company Number: US-ROCHE-3083237

PATIENT
  Age: 66 Year
  Sex: Male

DRUGS (1)
  1. OCREVUS [Suspect]
     Active Substance: OCRELIZUMAB
     Indication: Primary progressive multiple sclerosis
     Dosage: (PRESCRIBED AS INFUSE 300 MG IV ON DAY 1 AND 14 THEN 600 MG IV ONCE IN 24 WEEKS)?DATE OF TREATMENT:
     Route: 065
     Dates: start: 20190913

REACTIONS (5)
  - COVID-19 pneumonia [Recovered/Resolved]
  - Hyperphagia [Recovered/Resolved]
  - Insomnia [Recovered/Resolved]
  - Anger [Recovered/Resolved]
  - Therapeutic response shortened [Not Recovered/Not Resolved]

NARRATIVE: CASE EVENT DATE: 20220201
